FAERS Safety Report 5232227-3 (Version None)
Quarter: 2007Q1

REPORT INFORMATION
  Report Type: 
  Country: None (occurrence: None)
  Receive Date: 20070207
  Receipt Date: 20070131
  Transmission Date: 20070707
  Serious: Yes (Hospitalization)
  Sender: FDA-Public Use
  Company Number: DK-BAYER-200710727GDS

PATIENT
  Age: 51 Year
  Sex: Male
  Weight: 84 kg

DRUGS (17)
  1. SORAFENIB [Suspect]
     Indication: RENAL CELL CARCINOMA STAGE UNSPECIFIED
     Dosage: TOTAL DAILY DOSE: 400 MG
     Route: 048
     Dates: start: 20060419, end: 20061004
  2. SORAFENIB [Suspect]
     Dosage: TOTAL DAILY DOSE: 800 MG
     Route: 048
     Dates: start: 20060322, end: 20060419
  3. SORAFENIB [Suspect]
     Dosage: TOTAL DAILY DOSE: 800 MG
     Route: 048
     Dates: start: 20061004, end: 20061206
  4. OXYNORM [Concomitant]
     Indication: BACK PAIN
     Route: 065
     Dates: start: 20060310
  5. PAMOL [Concomitant]
     Indication: CANCER PAIN
     Route: 065
     Dates: start: 20061001
  6. IMODIUM [Concomitant]
     Indication: DIARRHOEA
     Route: 065
     Dates: start: 20061102
  7. PANODIL [Concomitant]
     Indication: BACK PAIN
     Route: 065
     Dates: start: 20061206
  8. TRADOLAN [Concomitant]
     Indication: BACK PAIN
     Route: 065
     Dates: start: 20061206, end: 20061212
  9. ZOLPIDEM TARTRATE [Concomitant]
     Indication: INSOMNIA
     Route: 065
     Dates: start: 20061211
  10. LAXATIVE [Concomitant]
     Indication: PROPHYLAXIS
     Route: 065
     Dates: start: 20061211
  11. ZOFRAN [Concomitant]
     Indication: RADIOTHERAPY
     Route: 065
     Dates: start: 20061214
  12. OXYCONTIN [Concomitant]
     Indication: CANCER PAIN
     Route: 065
     Dates: start: 20061201, end: 20061227
  13. OXYCONTIN [Concomitant]
     Route: 065
     Dates: start: 20070103
  14. OXYCONTIN [Concomitant]
     Route: 065
     Dates: start: 20061227, end: 20070103
  15. PREDNISOLONE [Concomitant]
     Indication: GENERAL PHYSICAL HEALTH DETERIORATION
     Route: 065
     Dates: start: 20061227
  16. PICOLON [Concomitant]
     Indication: CONSTIPATION PROPHYLAXIS
     Route: 065
     Dates: start: 20070101
  17. MAGNESIA [Concomitant]
     Indication: CONSTIPATION PROPHYLAXIS
     Route: 065
     Dates: start: 20070101

REACTIONS (3)
  - DYSPNOEA [None]
  - HYDROTHORAX [None]
  - PLEURAL EFFUSION [None]
